FAERS Safety Report 9738927 (Version 2)
Quarter: 2014Q2

REPORT INFORMATION
  Report Type: Report from Study
  Country: DE (occurrence: DE)
  Receive Date: 20131209
  Receipt Date: 20140512
  Transmission Date: 20141212
  Serious: Yes (Hospitalization)
  Sender: FDA-Public Use
  Company Number: DE-TAKEDA-2013TEU002978

PATIENT
  Age: 72 Year
  Sex: Male
  Weight: 78 kg

DRUGS (1)
  1. FIBRINOGEN, THROMBIN [Suspect]
     Indication: PROPHYLAXIS
     Dosage: 9.5 X 4.8 CM PATCH
     Dates: start: 20131014

REACTIONS (1)
  - Lymphocele [Recovering/Resolving]
